FAERS Safety Report 7717458-2 (Version None)
Quarter: 2011Q3

REPORT INFORMATION
  Report Type: 
  Country: None (occurrence: None)
  Receive Date: 20110830
  Receipt Date: 20110824
  Transmission Date: 20111222
  Serious: Yes (Hospitalization)
  Sender: FDA-Public Use
  Company Number: GB-AMGEN-GBRCT2011040726

PATIENT
  Age: 64 Year
  Sex: Male

DRUGS (9)
  1. DIPROBASE [Concomitant]
     Indication: RASH
     Dosage: UNK UNK, PRN
     Dates: start: 20110407
  2. PANITUMUMAB [Suspect]
     Indication: OESOPHAGEAL ADENOCARCINOMA
     Dosage: UNK
     Dates: start: 20110317
  3. E45 [Concomitant]
     Indication: RASH
     Dosage: UNK UNK, PRN
     Dates: start: 20110407
  4. HYDROCORTISONE [Concomitant]
     Indication: RASH
     Dosage: 1 %, UNK
     Dates: start: 20110407
  5. CAPECITABINE [Concomitant]
     Indication: OESOPHAGEAL ADENOCARCINOMA
     Dosage: UNK
     Dates: start: 20110317
  6. LANSOPRAZOL [Concomitant]
     Indication: REFLUX GASTRITIS
     Dosage: 30 MG, QD
     Dates: start: 20110304
  7. TAMSULOSIN HCL [Concomitant]
     Indication: PROSTATOMEGALY
     Dosage: 400 MUG, QD
     Dates: start: 20000101
  8. EPIRUBICIN [Concomitant]
     Indication: OESOPHAGEAL ADENOCARCINOMA
     Dosage: UNK
     Dates: start: 20110317
  9. OXALIPLATIN [Concomitant]
     Indication: OESOPHAGEAL ADENOCARCINOMA
     Dosage: UNK
     Dates: start: 20110317

REACTIONS (3)
  - BODY TEMPERATURE INCREASED [None]
  - DIARRHOEA [None]
  - INFECTION [None]
